FAERS Safety Report 9288687 (Version 1)
Quarter: 2013Q2

REPORT INFORMATION
  Report Type: Spontaneous
  Country: US (occurrence: US)
  Receive Date: 20130514
  Receipt Date: 20130514
  Transmission Date: 20140414
  Serious: Yes (Other)
  Sender: FDA-Public Use
  Company Number: US-JNJFOC-20130502721

PATIENT
  Age: 67 Year
  Sex: Male
  Weight: 88.45 kg

DRUGS (7)
  1. XARELTO [Suspect]
     Indication: THROMBOSIS PROPHYLAXIS
     Route: 048
     Dates: start: 201303, end: 201305
  2. XARELTO [Suspect]
     Indication: THROMBOSIS PROPHYLAXIS
     Route: 048
     Dates: start: 201303, end: 201303
  3. XARELTO [Suspect]
     Indication: KNEE ARTHROPLASTY
     Route: 048
     Dates: start: 201303, end: 201305
  4. XARELTO [Suspect]
     Indication: KNEE ARTHROPLASTY
     Route: 048
     Dates: start: 201303, end: 201303
  5. CALCIUM [Concomitant]
     Indication: NUTRITIONAL SUPPLEMENTATION
     Route: 048
  6. FISH OIL [Concomitant]
     Indication: NUTRITIONAL SUPPLEMENTATION
     Route: 048
  7. NIACIN [Concomitant]
     Indication: NUTRITIONAL SUPPLEMENTATION
     Route: 048

REACTIONS (3)
  - Atrial flutter [Recovered/Resolved]
  - Dyspnoea [Recovered/Resolved]
  - Pollakiuria [Recovering/Resolving]
